FAERS Safety Report 21587651 (Version 2)
Quarter: 2023Q1

REPORT INFORMATION
  Report Type: Report from Study
  Country: US (occurrence: US)
  Receive Date: 20221114
  Receipt Date: 20230323
  Transmission Date: 20230418
  Serious: No
  Sender: FDA-Public Use
  Company Number: US-ABBVIE-22K-163-4515775-00

PATIENT
  Age: 60 Year
  Sex: Female
  Weight: 94.8 kg

DRUGS (2)
  1. RINVOQ [Suspect]
     Active Substance: UPADACITINIB
     Indication: Rheumatoid arthritis
     Route: 048
     Dates: start: 202206
  2. METHOTREXATE [Concomitant]
     Active Substance: METHOTREXATE
     Indication: Blood cholesterol
     Dates: start: 201709

REACTIONS (9)
  - COVID-19 [Unknown]
  - Depression [Unknown]
  - Anxiety [Unknown]
  - Peptic ulcer [Unknown]
  - Thyroid disorder [Unknown]
  - Spinal disorder [Unknown]
  - Osteoporosis [Unknown]
  - Foot fracture [Unknown]
  - Hyperlipidaemia [Unknown]

NARRATIVE: CASE EVENT DATE: 20180101
